FAERS Safety Report 24218116 (Version 1)
Quarter: 2024Q3

REPORT INFORMATION
  Report Type: Spontaneous
  Country: RU (occurrence: RU)
  Receive Date: 20240816
  Receipt Date: 20240816
  Transmission Date: 20241016
  Serious: Yes (Death, Hospitalization, Other)
  Sender: BIOVITRUM
  Company Number: RU-BIOVITRUM-2024-RU-010942

PATIENT
  Sex: Female

DRUGS (1)
  1. DOPTELET [Suspect]
     Active Substance: AVATROMBOPAG MALEATE
     Indication: Immune thrombocytopenia
     Dosage: DAILY
     Route: 048
     Dates: start: 20240719

REACTIONS (2)
  - COVID-19 [Fatal]
  - Acute respiratory failure [Fatal]
